FAERS Safety Report 23743188 (Version 2)
Quarter: 2024Q2

REPORT INFORMATION
  Report Type: Report from Study
  Country: CA (occurrence: CA)
  Receive Date: 20240415
  Receipt Date: 20240514
  Transmission Date: 20240715
  Serious: Yes (Other)
  Sender: FDA-Public Use
  Company Number: CA-ABBVIE-5717823

PATIENT
  Sex: Female

DRUGS (1)
  1. SKYRIZI [Suspect]
     Active Substance: RISANKIZUMAB-RZAA
     Indication: Crohn^s disease
     Route: 058
     Dates: start: 20231212

REACTIONS (10)
  - Lung neoplasm malignant [Recovered/Resolved]
  - Haematochezia [Recovered/Resolved]
  - Mucous stools [Unknown]
  - Constipation [Unknown]
  - Faeces hard [Unknown]
  - Pus in stool [Unknown]
  - Alopecia [Unknown]
  - Rosacea [Unknown]
  - Stress [Unknown]
  - Bipolar disorder [Unknown]
